FAERS Safety Report 21578371 (Version 1)
Quarter: 2022Q4

REPORT INFORMATION
  Report Type: Spontaneous
  Country: CN (occurrence: CN)
  Receive Date: 20221110
  Receipt Date: 20221110
  Transmission Date: 20230112
  Serious: Yes (Other)
  Sender: FDA-Public Use
  Company Number: CN-ELI_LILLY_AND_COMPANY-CN202210014984

PATIENT
  Age: 29 Year
  Sex: Male

DRUGS (1)
  1. IXEKIZUMAB [Suspect]
     Active Substance: IXEKIZUMAB
     Indication: Pustular psoriasis
     Dosage: 160 MG, UNKNOWN
     Route: 058

REACTIONS (1)
  - Guillain-Barre syndrome [Unknown]
